FAERS Safety Report 4445464-2 (Version None)
Quarter: 2004Q3

REPORT INFORMATION
  Report Type: 
  Country: None (occurrence: None)
  Receive Date: 20040802
  Receipt Date: 20040426
  Transmission Date: 20050211
  Serious: No
  Sender: FDA-Public Use
  Company Number: 2004-115972-NL

PATIENT
  Age: 29 Year
  Sex: Female
  Weight: 90.9 kg

DRUGS (3)
  1. NUVARING [Suspect]
     Indication: CONTRACEPTION
     Dosage: DF DAILY VAGINAL
     Route: 067
  2. ALLEGRA [Concomitant]
  3. CENTRUM [Concomitant]

REACTIONS (2)
  - CONTACT LENS INTOLERANCE [None]
  - LIBIDO DECREASED [None]
